FAERS Safety Report 17337868 (Version 1)
Quarter: 2020Q1

REPORT INFORMATION
  Report Type: Spontaneous
  Country: US (occurrence: US)
  Receive Date: 20200129
  Receipt Date: 20200129
  Transmission Date: 20200409
  Serious: Yes (Hospitalization, Other)
  Sender: FDA-Public Use
  Company Number: US-AUROBINDO-AUR-APL-2020-004029

PATIENT
  Age: 24 Year
  Sex: Female

DRUGS (1)
  1. AMPHETAMINE SULFATE. [Suspect]
     Active Substance: AMPHETAMINE SULFATE
     Indication: PRODUCT USED FOR UNKNOWN INDICATION
     Dosage: UNK
     Route: 065

REACTIONS (5)
  - Basedow^s disease [Recovering/Resolving]
  - Cor pulmonale [Recovering/Resolving]
  - Hyperthyroidism [Recovering/Resolving]
  - Pulmonary arterial hypertension [Recovering/Resolving]
  - Cardiogenic shock [Recovering/Resolving]
